FAERS Safety Report 18060028 (Version 1)
Quarter: 2020Q3

REPORT INFORMATION
  Report Type: Spontaneous
  Country: US (occurrence: US)
  Receive Date: 20200723
  Receipt Date: 20200723
  Transmission Date: 20201103
  Serious: Yes (Death)
  Sender: FDA-Public Use
  Company Number: None

PATIENT
  Age: 52 Year
  Sex: Female
  Weight: 153.77 kg

DRUGS (8)
  1. TRULICITY [Concomitant]
     Active Substance: DULAGLUTIDE
  2. CARISOPRODOL. [Concomitant]
     Active Substance: CARISOPRODOL
  3. OZEMPIC [Concomitant]
     Active Substance: SEMAGLUTIDE
  4. PANTOPRAZOLE [Concomitant]
     Active Substance: PANTOPRAZOLE
  5. IBUPROFEN. [Concomitant]
     Active Substance: IBUPROFEN
  6. METFORMIN [Concomitant]
     Active Substance: METFORMIN HYDROCHLORIDE
  7. PROMACTA [Suspect]
     Active Substance: ELTROMBOPAG OLAMINE
     Indication: IMMUNE THROMBOCYTOPENIA
     Dates: start: 20180606, end: 20200720
  8. METOPROLOL TARTRATE. [Concomitant]
     Active Substance: METOPROLOL TARTRATE

REACTIONS (1)
  - COVID-19 [None]

NARRATIVE: CASE EVENT DATE: 20200720
